FAERS Safety Report 16410787 (Version 2)
Quarter: 2019Q3

REPORT INFORMATION
  Report Type: Spontaneous
  Country: US (occurrence: US)
  Receive Date: 20190610
  Receipt Date: 20190722
  Transmission Date: 20191004
  Serious: No
  Sender: FDA-Public Use
  Company Number: US-BAUSCH-BL-2019-015784

PATIENT
  Sex: Female
  Weight: 113.5 kg

DRUGS (3)
  1. METFORMIN [Suspect]
     Active Substance: METFORMIN HYDROCHLORIDE
     Indication: POLYCYSTIC OVARIES
  2. TRULICITY [Concomitant]
     Active Substance: DULAGLUTIDE
     Indication: DIABETES MELLITUS
     Dosage: 1.5 UNITS SINGLE SHOT IN ABDOMEN
  3. METFORMIN [Suspect]
     Active Substance: METFORMIN HYDROCHLORIDE
     Indication: TYPE 2 DIABETES MELLITUS
     Route: 065

REACTIONS (1)
  - Drug intolerance [Not Recovered/Not Resolved]
